FAERS Safety Report 13624928 (Version 2)
Quarter: 2017Q3

REPORT INFORMATION
  Report Type: Spontaneous
  Country: FR (occurrence: FR)
  Receive Date: 20170608
  Receipt Date: 20170918
  Transmission Date: 20171127
  Serious: Yes (Other)
  Sender: FDA-Public Use
  Company Number: FR-SUN PHARMACEUTICAL INDUSTRIES LTD-2017RR-142566

PATIENT
  Age: 36 Year
  Sex: Male

DRUGS (3)
  1. GEMCITABINE [Suspect]
     Active Substance: GEMCITABINE\GEMCITABINE HYDROCHLORIDE
     Dosage: 100 MG/M2, ON WEEKS 1 AND 2, ON A WEEKLY BASIS
     Route: 065
  2. GEMCITABINE [Suspect]
     Active Substance: GEMCITABINE\GEMCITABINE HYDROCHLORIDE
     Indication: PENILE CANCER
     Dosage: 300 MG/M2, ON WEEKS 6 AND 7, ON A WEEKLY BASIS
     Route: 065
  3. GEMCITABINE [Suspect]
     Active Substance: GEMCITABINE\GEMCITABINE HYDROCHLORIDE
     Dosage: 200 MG/M2, ON WEEKS 3 AND 4, ON A WEEKLY BASIS
     Route: 065

REACTIONS (2)
  - Thrombocytopenia [Recovered/Resolved]
  - Skin reaction [Recovering/Resolving]
